FAERS Safety Report 25020378 (Version 1)
Quarter: 2025Q1

REPORT INFORMATION
  Report Type: Spontaneous
  Country: US (occurrence: US)
  Receive Date: 20250227
  Receipt Date: 20250227
  Transmission Date: 20250409
  Serious: No
  Sender: PRIMUS PHARMACEUTICALS
  Company Number: US-PRIMUS-2024-US-010728

PATIENT
  Age: 68 Year
  Sex: Female
  Weight: 61.24 kg

DRUGS (4)
  1. SERNIVO [Suspect]
     Active Substance: BETAMETHASONE DIPROPIONATE
     Indication: Psoriasis
     Route: 061
     Dates: start: 202311, end: 202312
  2. LISINOPRIL [Concomitant]
     Active Substance: LISINOPRIL
  3. ROSUVASTATIN [Concomitant]
     Active Substance: ROSUVASTATIN
  4. VITAMIN D [Concomitant]
     Active Substance: VITAMIN D NOS

REACTIONS (2)
  - Rash pustular [Recovered/Resolved]
  - Product administered at inappropriate site [Recovered/Resolved]

NARRATIVE: CASE EVENT DATE: 20231101
